FAERS Safety Report 4825087-3 (Version None)
Quarter: 2005Q4

REPORT INFORMATION
  Report Type: 
  Country: None (occurrence: None)
  Receive Date: 20051108
  Receipt Date: 20051025
  Transmission Date: 20060501
  Serious: Yes (Hospitalization)
  Sender: FDA-Public Use
  Company Number: AU-2005-022113

PATIENT
  Age: 22 Year
  Sex: Female

DRUGS (5)
  1. LEUKINE [Suspect]
     Indication: CROHN'S DISEASE
     Dosage: 0.7 M1, 2X/DAY, SUBCUTANEOUS
     Route: 058
     Dates: start: 20051005, end: 20051023
  2. ACETAMINOPHEN [Concomitant]
  3. LEVLEN ED [Concomitant]
  4. GLUCOSAMINE (GLUCOSAMINE) [Concomitant]
  5. ACETAMINOPHEN [Concomitant]

REACTIONS (3)
  - ABDOMINAL ABSCESS [None]
  - ABDOMINAL PAIN [None]
  - HEPATOSPLENOMEGALY [None]
